FAERS Safety Report 24107214 (Version 1)
Quarter: 2024Q3

REPORT INFORMATION
  Report Type: Spontaneous
  Country: LK (occurrence: LK)
  Receive Date: 20240718
  Receipt Date: 20240718
  Transmission Date: 20241016
  Serious: Yes (Hospitalization)
  Sender: STRIDES
  Company Number: LK-STRIDES ARCOLAB LIMITED-2024SP008693

PATIENT
  Age: 67 Year
  Sex: Male

DRUGS (7)
  1. OMEPRAZOLE [Suspect]
     Active Substance: OMEPRAZOLE
     Indication: Dyspepsia
     Dosage: UNK (RECEIVED OVER THE COUNTER)
     Route: 065
  2. CORIANDER OIL [Suspect]
     Active Substance: CORIANDER OIL
     Indication: Phytotherapy
     Dosage: UNK
     Route: 065
  3. CORIANDER OIL [Suspect]
     Active Substance: CORIANDER OIL
     Indication: Immune enhancement therapy
  4. GINGER [Suspect]
     Active Substance: GINGER
     Indication: Phytotherapy
     Route: 065
  5. GINGER [Suspect]
     Active Substance: GINGER
     Indication: Immune enhancement therapy
  6. Coscinium fenestratum [Concomitant]
     Indication: Phytotherapy
     Route: 065
  7. Coscinium fenestratum [Concomitant]
     Indication: Immune enhancement therapy

REACTIONS (1)
  - Insulin autoimmune syndrome [Recovered/Resolved]
